FAERS Safety Report 9446000 (Version 2)
Quarter: 2013Q3

REPORT INFORMATION
  Report Type: Spontaneous
  Country: US (occurrence: US)
  Receive Date: 20130807
  Receipt Date: 20130830
  Transmission Date: 20140515
  Serious: Yes (Other)
  Sender: FDA-Public Use
  Company Number: ALCN2013US002730

PATIENT
  Age: 53 Year
  Sex: Male
  Weight: 88.92 kg

DRUGS (8)
  1. NATACYN [Suspect]
     Indication: EYE INFECTION
     Dosage: 1 GTT, Q4H
     Route: 047
     Dates: start: 20130404, end: 20130503
  2. NATACYN [Suspect]
     Indication: ULCERATIVE KERATITIS
     Dosage: 1 GTT, Q2H
     Route: 047
     Dates: start: 201304, end: 201304
  3. NATACYN [Suspect]
     Dosage: 1 GTT, QH
     Route: 047
     Dates: start: 20130404, end: 201304
  4. ZYMAXID [Concomitant]
     Indication: EYE INFECTION
     Dosage: 1 GTT, Q2H
     Route: 047
     Dates: start: 20130404, end: 20130503
  5. ZYMAXID [Concomitant]
     Indication: ULCERATIVE KERATITIS
  6. HYDROCODONE/ACETAMINOPHEN          /00607101/ [Concomitant]
     Route: 048
     Dates: start: 20130403, end: 20130417
  7. CIPROFLOX//CIPROFLOXACIN HYDROCHLORIDE [Concomitant]
     Indication: EYE INFECTION
     Route: 047
     Dates: start: 20130412
  8. REFRESH OPTIVE [Concomitant]
     Dosage: UNK

REACTIONS (9)
  - Keratitis [Recovering/Resolving]
  - Ocular hyperaemia [Recovered/Resolved]
  - Abnormal sensation in eye [Recovering/Resolving]
  - Eye pain [Recovered/Resolved]
  - Eye disorder [Recovering/Resolving]
  - Somnolence [Recovering/Resolving]
  - Vision blurred [Recovering/Resolving]
  - Foreign body in eye [Recovering/Resolving]
  - Eye irritation [Recovering/Resolving]
